FAERS Safety Report 12347225 (Version 1)
Quarter: 2016Q2

REPORT INFORMATION
  Report Type: Not Available
  Country: None (occurrence: US)
  Receive Date: 20160509
  Receipt Date: 20160509
  Transmission Date: 20160815
  Serious: Yes (Life-Threatening)
  Sender: FDA-Public Use
  Company Number: KR-AKORN-30257

PATIENT
  Age: 76 Year
  Sex: Female

DRUGS (1)
  1. ACETIC ACID OTIC SOLUTION [Suspect]
     Active Substance: ACETIC ACID

REACTIONS (5)
  - Acute respiratory distress syndrome [Recovered/Resolved]
  - Shock [Recovered/Resolved]
  - Loss of consciousness [Recovered/Resolved]
  - Procedural hypotension [Recovered/Resolved]
  - Respiratory failure [Recovered/Resolved]
